FAERS Safety Report 6115187-2 (Version None)
Quarter: 2009Q1

REPORT INFORMATION
  Report Type: 
  Country: None (occurrence: None)
  Receive Date: 20090313
  Receipt Date: 20090303
  Transmission Date: 20090719
  Serious: Yes (Other)
  Sender: FDA-Public Use
  Company Number: US-JNJFOC-20090300788

PATIENT
  Sex: Male
  Weight: 113.4 kg

DRUGS (4)
  1. REMICADE [Suspect]
     Route: 042
  2. REMICADE [Suspect]
     Indication: RHEUMATOID ARTHRITIS
     Dosage: DOSE REPORTED AS ^7 VIALS^
     Route: 042
  3. PERCOCET [Concomitant]
     Indication: PAIN
     Dosage: DOSE IS 325/10 MG; 4-5 WEEKLY; TAKEN FOR ^SEVERAL YEARS^
  4. SIMVASTATIN [Concomitant]
     Indication: BLOOD CHOLESTEROL
     Dosage: DURATION 6 MONTHS

REACTIONS (2)
  - EXOSTOSIS [None]
  - TENDON OPERATION [None]
